FAERS Safety Report 4511049-2 (Version None)
Quarter: 2004Q4

REPORT INFORMATION
  Report Type: 
  Country: None (occurrence: None)
  Receive Date: 20041018
  Receipt Date: 20040910
  Transmission Date: 20050328
  Serious: No
  Sender: FDA-Public Use
  Company Number: 208989

PATIENT
  Age: 48 Year
  Sex: Female

DRUGS (7)
  1. XOLAIR [Suspect]
     Indication: ASTHMA
     Dosage: Q2W
     Dates: start: 20040501
  2. INSULIN 70/30 (NPH HUMAN INSULIN ISOPHANE SUSPENSION, INSULIN HUMAN) [Concomitant]
  3. SINGULAIR [Concomitant]
  4. ALBUTEROL NEBULIZER (ALBUTEROL SULFATE, ALBUTEROL) [Concomitant]
  5. ATROVENT NEBULIZER (IPRATROPIUM BROMIDE) [Concomitant]
  6. VENTOLIN INHALER (ALBUTEROL SULFATE, ALBUTEROL) [Concomitant]
  7. FLOVENT [Concomitant]

REACTIONS (1)
  - METRORRHAGIA [None]
